FAERS Safety Report 6709236-8 (Version None)
Quarter: 2010Q2

REPORT INFORMATION
  Report Type: 
  Country: None (occurrence: None)
  Receive Date: 20100503
  Receipt Date: 20100503
  Transmission Date: 20101027
  Serious: No
  Sender: FDA-Public Use
  Company Number: None

PATIENT
  Age: 84 Year
  Sex: Female
  Weight: 48.5349 kg

DRUGS (22)
  1. METOPROLOL SUCCINATE [Suspect]
     Indication: HEART RATE INCREASED
     Dosage: 25 MG TWICE DAILY MOUTH
     Route: 048
     Dates: start: 20100118
  2. METOPROLOL SUCCINATE [Suspect]
     Indication: HEART RATE IRREGULAR
     Dosage: 25 MG TWICE DAILY MOUTH
     Route: 048
     Dates: start: 20100118
  3. METOPROLOL SUCCINATE [Suspect]
     Indication: HEART RATE INCREASED
     Dosage: 25 MG TWICE DAILY MOUTH
     Route: 048
     Dates: start: 20100119
  4. METOPROLOL SUCCINATE [Suspect]
     Indication: HEART RATE IRREGULAR
     Dosage: 25 MG TWICE DAILY MOUTH
     Route: 048
     Dates: start: 20100119
  5. METOPROLOL SUCCINATE [Suspect]
     Indication: HEART RATE INCREASED
     Dosage: 25 MG TWICE DAILY MOUTH
     Route: 048
     Dates: start: 20100120
  6. METOPROLOL SUCCINATE [Suspect]
     Indication: HEART RATE IRREGULAR
     Dosage: 25 MG TWICE DAILY MOUTH
     Route: 048
     Dates: start: 20100120
  7. METOPROLOL SUCCINATE [Suspect]
     Indication: HEART RATE INCREASED
     Dosage: 25 MG TWICE DAILY MOUTH
     Route: 048
     Dates: start: 20100121
  8. METOPROLOL SUCCINATE [Suspect]
     Indication: HEART RATE IRREGULAR
     Dosage: 25 MG TWICE DAILY MOUTH
     Route: 048
     Dates: start: 20100121
  9. METOPROLOL SUCCINATE [Suspect]
     Indication: HEART RATE INCREASED
     Dosage: 25 MG TWICE DAILY MOUTH
     Route: 048
     Dates: start: 20100122
  10. METOPROLOL SUCCINATE [Suspect]
     Indication: HEART RATE IRREGULAR
     Dosage: 25 MG TWICE DAILY MOUTH
     Route: 048
     Dates: start: 20100122
  11. METOPROLOL SUCCINATE [Suspect]
     Indication: HEART RATE INCREASED
     Dosage: 25 MG TWICE DAILY MOUTH
     Route: 048
     Dates: start: 20100123
  12. METOPROLOL SUCCINATE [Suspect]
     Indication: HEART RATE IRREGULAR
     Dosage: 25 MG TWICE DAILY MOUTH
     Route: 048
     Dates: start: 20100123
  13. METOPROLOL SUCCINATE [Suspect]
     Indication: HEART RATE INCREASED
     Dosage: 25 MG TWICE DAILY MOUTH
     Route: 048
     Dates: start: 20100124
  14. METOPROLOL SUCCINATE [Suspect]
     Indication: HEART RATE IRREGULAR
     Dosage: 25 MG TWICE DAILY MOUTH
     Route: 048
     Dates: start: 20100124
  15. METOPROLOL SUCCINATE [Suspect]
     Indication: HEART RATE INCREASED
     Dosage: 25 MG TWICE DAILY MOUTH
     Route: 048
     Dates: start: 20100125
  16. METOPROLOL SUCCINATE [Suspect]
     Indication: HEART RATE IRREGULAR
     Dosage: 25 MG TWICE DAILY MOUTH
     Route: 048
     Dates: start: 20100125
  17. METOPROLOL SUCCINATE [Suspect]
     Indication: HEART RATE INCREASED
     Dosage: 25 MG TWICE DAILY MOUTH
     Route: 048
     Dates: start: 20100126
  18. METOPROLOL SUCCINATE [Suspect]
     Indication: HEART RATE IRREGULAR
     Dosage: 25 MG TWICE DAILY MOUTH
     Route: 048
     Dates: start: 20100126
  19. METOPROLOL SUCCINATE [Suspect]
     Indication: HEART RATE INCREASED
     Dosage: 25 MG TWICE DAILY MOUTH
     Route: 048
     Dates: start: 20100127
  20. METOPROLOL SUCCINATE [Suspect]
     Indication: HEART RATE IRREGULAR
     Dosage: 25 MG TWICE DAILY MOUTH
     Route: 048
     Dates: start: 20100127
  21. METOPROLOL SUCCINATE [Suspect]
     Indication: HEART RATE INCREASED
     Dosage: 25 MG TWICE DAILY MOUTH
     Route: 048
     Dates: start: 20100128
  22. METOPROLOL SUCCINATE [Suspect]
     Indication: HEART RATE IRREGULAR
     Dosage: 25 MG TWICE DAILY MOUTH
     Route: 048
     Dates: start: 20100128

REACTIONS (4)
  - DIARRHOEA [None]
  - MUSCLE SPASMS [None]
  - POLLAKIURIA [None]
  - VOMITING [None]
